FAERS Safety Report 6987195 (Version 3)
Quarter: 2014Q2

REPORT INFORMATION
  Report Type: Spontaneous
  Country: FR (occurrence: None)
  Receive Date: 20090424
  Receipt Date: 20140509
  Transmission Date: 20141212
  Serious: Yes (Hospitalization)
  Sender: FDA-Public Use
  Company Number: 6050445

PATIENT
  Age: 57 Year
  Sex: Female

DRUGS (9)
  1. LEVOTHYROXINE SODIUM [Suspect]
     Indication: PRODUCT USED FOR UNKNOWN INDICATION
     Dosage: ORAL
     Route: 048
  2. BENFLUOREX HYDROCHLORIDE [Suspect]
     Indication: DIABETES MELLITUS
     Dosage: 3 DOSAGE FORMS (3 DOSAGE FORMS,1 D) ORAL
     Route: 048
     Dates: start: 20030820, end: 20060807
  3. RAMIPRIL [Suspect]
     Indication: CARDIAC FAILURE
     Dosage: ORAL
     Route: 048
  4. LASILIX (FUROSEMIDE) [Suspect]
     Indication: PRODUCT USED FOR UNKNOWN INDICATION
     Dosage: ORAL
  5. FORADIL [Suspect]
     Indication: PRODUCT USED FOR UNKNOWN INDICATION
     Dosage: ORAL
     Route: 048
  6. PAROXETINE HYDROCHLORIDE [Suspect]
     Indication: DEPRESSION
     Dosage: ORAL
     Route: 048
     Dates: start: 2005, end: 2007
  7. XANAX [Suspect]
     Indication: PRODUCT USED FOR UNKNOWN INDICATION
     Dosage: ORAL
     Route: 048
  8. ACETAMINOPHEN\PROPOXYPHENE HYDROCHLORIDE [Suspect]
     Indication: PRODUCT USED FOR UNKNOWN INDICATION
     Dosage: ORAL
     Route: 048
  9. POTASSIUM CHLORIDE [Suspect]
     Indication: PRODUCT USED FOR UNKNOWN INDICATION
     Dosage: ORAL
     Route: 048

REACTIONS (14)
  - Ejection fraction decreased [None]
  - Mitral valve incompetence [None]
  - Pulmonary arterial hypertension [None]
  - Tricuspid valve incompetence [None]
  - Ventricular hypokinesia [None]
  - Depression [None]
  - Bronchitis [None]
  - Rotator cuff syndrome [None]
  - Cardiac murmur [None]
  - Dyspnoea exertional [None]
  - Cardiomyopathy [None]
  - Electrocardiogram PR prolongation [None]
  - Diastolic dysfunction [None]
  - Aortic valve incompetence [None]
